FAERS Safety Report 6821866-1 (Version None)
Quarter: 2010Q3

REPORT INFORMATION
  Report Type: 
  Country: None (occurrence: None)
  Receive Date: 20100708
  Receipt Date: 20100628
  Transmission Date: 20110219
  Serious: No
  Sender: FDA-Public Use
  Company Number: US-BIOGENIDEC-2010BI019488

PATIENT
  Age: 20 Year
  Sex: Female

DRUGS (1)
  1. TYSABRI [Suspect]
     Indication: MULTIPLE SCLEROSIS
     Route: 042
     Dates: start: 20091015, end: 20100501

REACTIONS (7)
  - ASTHENIA [None]
  - CHEST PAIN [None]
  - FALL [None]
  - HERPES ZOSTER [None]
  - MENSTRUATION IRREGULAR [None]
  - METRORRHAGIA [None]
  - MUSCULOSKELETAL PAIN [None]
